FAERS Safety Report 15673024 (Version 3)
Quarter: 2018Q4

REPORT INFORMATION
  Report Type: Spontaneous
  Country: US (occurrence: US)
  Receive Date: 20181129
  Receipt Date: 20181224
  Transmission Date: 20190205
  Serious: Yes (Other)
  Sender: FDA-Public Use
  Company Number: US-BAUSCH-BL-2018-033291

PATIENT
  Sex: Female
  Weight: 43.13 kg

DRUGS (4)
  1. IRON [Suspect]
     Active Substance: IRON
     Indication: PRODUCT USED FOR UNKNOWN INDICATION
     Route: 065
  2. OCEAN SALINE NASAL SPRAY [Suspect]
     Active Substance: SODIUM CHLORIDE
     Dosage: 2 SQUIRTS EVERY HOUR (UP TO 12 PER DAY)
     Route: 045
     Dates: start: 2017, end: 20181126
  3. OCEAN SALINE NASAL SPRAY [Suspect]
     Active Substance: SODIUM CHLORIDE
     Dosage: 2 SQUIRTS IN EACH NOSTRIL IN EVERY HALF AN HOUR
     Route: 045
     Dates: start: 2018
  4. OCEAN SALINE NASAL SPRAY [Suspect]
     Active Substance: SODIUM CHLORIDE
     Indication: NASAL IRRIGATION
     Dosage: 2 SQUIRTS MORNING AND NIGHT IN EACH NOSTRIL
     Route: 045
     Dates: start: 2015, end: 2017

REACTIONS (3)
  - Faeces discoloured [Not Recovered/Not Resolved]
  - Epistaxis [Not Recovered/Not Resolved]
  - Diarrhoea [Not Recovered/Not Resolved]

NARRATIVE: CASE EVENT DATE: 2017
